FAERS Safety Report 12733763 (Version 1)
Quarter: 2016Q3

REPORT INFORMATION
  Report Type: Report from Study
  Country: US (occurrence: US)
  Receive Date: 20160912
  Receipt Date: 20160912
  Transmission Date: 20161109
  Serious: Yes (Death, Other)
  Sender: FDA-Public Use
  Company Number: US-ROCHE-1827337

PATIENT
  Age: 8 Year
  Sex: Female
  Weight: 26.6 kg

DRUGS (1)
  1. BEVACIZUMAB [Suspect]
     Active Substance: BEVACIZUMAB
     Indication: MEDULLOBLASTOMA RECURRENT
     Route: 065
     Dates: start: 20150323

REACTIONS (3)
  - Alanine aminotransferase increased [Unknown]
  - Medulloblastoma [Fatal]
  - Lymphocyte count decreased [Unknown]

NARRATIVE: CASE EVENT DATE: 20150825
